FAERS Safety Report 20759483 (Version 1)
Quarter: 2022Q2

REPORT INFORMATION
  Report Type: Spontaneous
  Country: US (occurrence: US)
  Receive Date: 20220427
  Receipt Date: 20220427
  Transmission Date: 20220720
  Serious: No
  Sender: FDA-Public Use
  Company Number: US-BioHaven Pharmaceuticals-2022BHV000502

PATIENT
  Age: 74 Year
  Sex: Female

DRUGS (1)
  1. NURTEC ODT [Suspect]
     Active Substance: RIMEGEPANT SULFATE
     Indication: Migraine
     Dosage: IN TOTAL TOOK 7 TIMES IN A MONTH
     Route: 048
     Dates: start: 202201, end: 202202

REACTIONS (1)
  - Drug ineffective [Not Recovered/Not Resolved]
